FAERS Safety Report 6375346-0 (Version None)
Quarter: 2009Q3

REPORT INFORMATION
  Report Type: 
  Country: None (occurrence: None)
  Receive Date: 20090924
  Receipt Date: 20090915
  Transmission Date: 20100115
  Serious: Yes (Other)
  Sender: FDA-Public Use
  Company Number: US-JNJFOC-20090904801

PATIENT
  Sex: Female
  Weight: 91 kg

DRUGS (6)
  1. REMICADE [Suspect]
     Route: 042
     Dates: start: 20081210
  2. REMICADE [Suspect]
     Indication: PSORIASIS
     Route: 042
     Dates: start: 20081210
  3. TACLONEX [Concomitant]
  4. ULTRAVATE [Concomitant]
  5. INSULIN [Concomitant]
  6. AMBIEN [Concomitant]

REACTIONS (1)
  - LATENT TUBERCULOSIS [None]
